FAERS Safety Report 20119322 (Version 2)
Quarter: 2022Q1

REPORT INFORMATION
  Report Type: Other
  Country: NL (occurrence: NL)
  Receive Date: 20211126
  Receipt Date: 20220129
  Transmission Date: 20220424
  Serious: Yes (Other)
  Sender: FDA-Public Use
  Company Number: NL-ROCHE-2960215

PATIENT
  Age: 58 Year
  Sex: Male

DRUGS (3)
  1. TOCILIZUMAB [Suspect]
     Active Substance: TOCILIZUMAB
     Indication: COVID-19 pneumonia
     Route: 042
  2. NEOSTIGMINE [Concomitant]
     Active Substance: NEOSTIGMINE
  3. DEXAMETHASONE [Concomitant]
     Active Substance: DEXAMETHASONE
     Dosage: CONTINUED FOR 19 DAYS

REACTIONS (2)
  - Gastrointestinal perforation [Unknown]
  - Off label use [Unknown]
